FAERS Safety Report 7680625-0 (Version None)
Quarter: 2011Q3

REPORT INFORMATION
  Report Type: 
  Country: None (occurrence: None)
  Receive Date: 20110812
  Receipt Date: 20110801
  Transmission Date: 20111222
  Serious: Yes (Hospitalization)
  Sender: FDA-Public Use
  Company Number: US-JNJFOC-20110804693

PATIENT
  Age: 84 Year
  Sex: Male

DRUGS (3)
  1. TYLENOL-500 [Suspect]
     Route: 048
  2. PLAVIX [Concomitant]
     Indication: ANTICOAGULANT THERAPY
  3. TYLENOL-500 [Suspect]
     Indication: ANALGESIC THERAPY
     Route: 048
     Dates: start: 20110731, end: 20110801

REACTIONS (2)
  - VOMITING [None]
  - PRODUCT QUALITY ISSUE [None]
